FAERS Safety Report 4766073-1 (Version None)
Quarter: 2005Q3

REPORT INFORMATION
  Report Type: 
  Country: None (occurrence: None)
  Receive Date: 20050906
  Receipt Date: 20050824
  Transmission Date: 20060218
  Serious: Yes (Hospitalization, Other)
  Sender: FDA-Public Use
  Company Number: USA0508106416

PATIENT
  Age: 70 Year
  Sex: Female

DRUGS (1)
  1. FORTEO [Suspect]
     Dates: start: 20050601

REACTIONS (3)
  - DRUG DOSE OMISSION [None]
  - INGUINAL HERNIA [None]
  - PHARMACEUTICAL PRODUCT COMPLAINT [None]
